FAERS Safety Report 15260820 (Version 1)
Quarter: 2018Q3

REPORT INFORMATION
  Report Type: Report from Study
  Country: US (occurrence: US)
  Receive Date: 20180809
  Receipt Date: 20180809
  Transmission Date: 20181010
  Serious: Yes (Hospitalization, Other)
  Sender: FDA-Public Use
  Company Number: US-BAYER-2018-136206

PATIENT
  Age: 20 Year
  Sex: Female

DRUGS (3)
  1. IRON [Concomitant]
     Active Substance: IRON
  2. VITAMIN D [Concomitant]
     Active Substance: CHOLECALCIFEROL
  3. NEXAVAR [Suspect]
     Active Substance: SORAFENIB
     Indication: HEPATOCELLULAR CARCINOMA
     Dosage: 400 MG, BID
     Route: 048
     Dates: start: 20180706

REACTIONS (8)
  - Fatigue [Unknown]
  - Hypersomnia [Unknown]
  - Drug eruption [Recovering/Resolving]
  - Back pain [Unknown]
  - Stent placement [None]
  - Vomiting [None]
  - Kidney infection [Unknown]
  - Nausea [None]

NARRATIVE: CASE EVENT DATE: 201807
